FAERS Safety Report 17110507 (Version 1)
Quarter: 2019Q4

REPORT INFORMATION
  Report Type: Spontaneous
  Country: US (occurrence: US)
  Receive Date: 20191108
  Receipt Date: 20191108
  Transmission Date: 20200122
  Serious: Yes (Hospitalization)
  Sender: FDA-Public Use
  Company Number: None

PATIENT
  Age: 67 Year
  Sex: Male

DRUGS (10)
  1. LIPITOR [Concomitant]
     Active Substance: ATORVASTATIN CALCIUM
  2. MAGNESIUM [Concomitant]
     Active Substance: MAGNESIUM
  3. CYCLOBENZAPRINE. [Concomitant]
     Active Substance: CYCLOBENZAPRINE
  4. TACROLIMUS. [Concomitant]
     Active Substance: TACROLIMUS
  5. PROTONIX [Concomitant]
     Active Substance: PANTOPRAZOLE SODIUM
  6. NEURONTIN [Concomitant]
     Active Substance: GABAPENTIN
  7. ABILIFY [Concomitant]
     Active Substance: ARIPIPRAZOLE
  8. NORVASC [Concomitant]
     Active Substance: AMLODIPINE BESYLATE
  9. MYCOPHENOLIC 360MG [Suspect]
     Active Substance: MYCOPHENOLIC ACID
     Indication: LIVER TRANSPLANT
     Route: 048
     Dates: start: 20151128
  10. AMLODIPINE [Concomitant]
     Active Substance: AMLODIPINE BESYLATE

REACTIONS (2)
  - Blood creatine increased [None]
  - Joint swelling [None]

NARRATIVE: CASE EVENT DATE: 20191102
